FAERS Safety Report 7690833-0 (Version None)
Quarter: 2011Q3

REPORT INFORMATION
  Report Type: 
  Country: None (occurrence: None)
  Receive Date: 20110818
  Receipt Date: 20110804
  Transmission Date: 20111222
  Serious: Yes (Other)
  Sender: FDA-Public Use
  Company Number: BR-JNJFOC-20110806727

PATIENT

DRUGS (1)
  1. KETOCONAZOLE [Suspect]
     Indication: LABORATORY TEST
     Route: 065

REACTIONS (2)
  - ANGIOEDEMA [None]
  - URTICARIA [None]
